FAERS Safety Report 22255583 (Version 1)
Quarter: 2023Q2

REPORT INFORMATION
  Report Type: Spontaneous
  Country: CA (occurrence: CA)
  Receive Date: 20230426
  Receipt Date: 20230426
  Transmission Date: 20230721
  Serious: Yes (Life-Threatening, Hospitalization, Other)
  Sender: FDA-Public Use
  Company Number: CA-FreseniusKabi-FK202305295

PATIENT
  Age: 68 Year
  Sex: Female
  Weight: 116.5 kg

DRUGS (1)
  1. PIPERACILLIN SODIUM\TAZOBACTAM SODIUM [Suspect]
     Active Substance: PIPERACILLIN SODIUM\TAZOBACTAM SODIUM
     Indication: Product used for unknown indication
     Dosage: 4500 MG?NOT SPECIFIED
     Route: 042

REACTIONS (3)
  - Acute kidney injury [Recovering/Resolving]
  - Pulmonary renal syndrome [Recovering/Resolving]
  - Hypervolaemia [Recovering/Resolving]
